FAERS Safety Report 9206688 (Version 1)
Quarter: 2013Q1

REPORT INFORMATION
  Report Type: Spontaneous
  Country: US (occurrence: None)
  Receive Date: 20120731
  Receipt Date: 20120731
  Transmission Date: 20140127
  Serious: No
  Sender: FDA-Public Use
  Company Number: 2012MZ000339

PATIENT
  Age: 54 Year
  Sex: Male
  Weight: 83.92 kg

DRUGS (4)
  1. XEOMIN [Suspect]
     Indication: TORTICOLLIS
     Route: 030
     Dates: start: 20120518, end: 20120518
  2. CLONAZEPAM [Concomitant]
  3. ZANAFLEX [Concomitant]
  4. COGENTIN [Concomitant]

REACTIONS (3)
  - Choking [None]
  - Dysphagia [None]
  - Dyspnoea [None]
